FAERS Safety Report 13023762 (Version 1)
Quarter: 2016Q4

REPORT INFORMATION
  Report Type: Report from Study
  Country: IL (occurrence: IL)
  Receive Date: 20161213
  Receipt Date: 20161213
  Transmission Date: 20170207
  Serious: Yes (Hospitalization, Other)
  Sender: FDA-Public Use
  Company Number: PHHY2016IL044010

PATIENT
  Age: 63 Year
  Sex: Female

DRUGS (1)
  1. SANDOSTATIN LAR DEPOT [Suspect]
     Active Substance: OCTREOTIDE ACETATE
     Indication: NEUROENDOCRINE TUMOUR
     Dosage: 60 MG, QMO
     Route: 030
     Dates: start: 20140507

REACTIONS (7)
  - Hepatic neoplasm [Unknown]
  - Cholelithiasis [Not Recovered/Not Resolved]
  - Back pain [Unknown]
  - Abdominal pain upper [Recovered/Resolved]
  - Gastric haemorrhage [Unknown]
  - Gallbladder neoplasm [Unknown]
  - Lymphatic system neoplasm [Unknown]

NARRATIVE: CASE EVENT DATE: 20160328
